FAERS Safety Report 19515564 (Version 2)
Quarter: 2021Q3

REPORT INFORMATION
  Report Type: Spontaneous
  Country: US (occurrence: US)
  Receive Date: 20210710
  Receipt Date: 20210823
  Transmission Date: 20211014
  Serious: Yes (Hospitalization)
  Sender: FDA-Public Use
  Company Number: US-ROCHE-2865228

PATIENT
  Age: 59 Year
  Sex: Female

DRUGS (7)
  1. LOSARTAN POTASSIUM. [Concomitant]
     Active Substance: LOSARTAN POTASSIUM
  2. CELECOXIB. [Concomitant]
     Active Substance: CELECOXIB
  3. ACTEMRA [Suspect]
     Active Substance: TOCILIZUMAB
     Indication: MYALGIA
  4. CLOPIDOGREL [Concomitant]
     Active Substance: CLOPIDOGREL BISULFATE
  5. PREDNISONE. [Concomitant]
     Active Substance: PREDNISONE
  6. DULOXETINE. [Concomitant]
     Active Substance: DULOXETINE
  7. ACTEMRA [Suspect]
     Active Substance: TOCILIZUMAB
     Indication: GIANT CELL ARTERITIS
     Route: 058
     Dates: start: 20210226

REACTIONS (3)
  - Sepsis [Unknown]
  - Spinal cord infection [Unknown]
  - Product dose omission issue [Unknown]

NARRATIVE: CASE EVENT DATE: 20210705
